FAERS Safety Report 5569163-9 (Version None)
Quarter: 2007Q4

REPORT INFORMATION
  Report Type: 
  Country: None (occurrence: None)
  Receive Date: 20071220
  Receipt Date: 20070809
  Transmission Date: 20080405
  Serious: No
  Sender: FDA-Public Use
  Company Number: A0669223A

PATIENT
  Age: 75 Year
  Sex: Male

DRUGS (4)
  1. AVODART [Suspect]
     Indication: BENIGN PROSTATIC HYPERPLASIA
     Dosage: .5MG PER DAY
     Route: 048
     Dates: start: 20050301, end: 20071101
  2. LIPITOR [Concomitant]
  3. ATACAND [Concomitant]
     Dates: start: 20010301
  4. VIAGRA [Concomitant]

REACTIONS (6)
  - BREAST ENLARGEMENT [None]
  - DRUG INEFFECTIVE [None]
  - DYSURIA [None]
  - EJACULATION DISORDER [None]
  - ERECTILE DYSFUNCTION [None]
  - MICTURITION URGENCY [None]
